FAERS Safety Report 7424421-8 (Version None)
Quarter: 2011Q2

REPORT INFORMATION
  Report Type: 
  Country: None (occurrence: None)
  Receive Date: 20110419
  Receipt Date: 20110207
  Transmission Date: 20111010
  Serious: No
  Sender: FDA-Public Use
  Company Number: US-ABBOTT-11P-163-0704486-00

PATIENT
  Sex: Male
  Weight: 10.6 kg

DRUGS (3)
  1. EPOGEN [Concomitant]
     Indication: PRODUCT USED FOR UNKNOWN INDICATION
  2. ZEMPLAR [Suspect]
     Indication: PARATHYROID DISORDER
     Dates: end: 20101201
  3. CALCITRIOL [Concomitant]
     Indication: PRODUCT USED FOR UNKNOWN INDICATION

REACTIONS (3)
  - INCORRECT ROUTE OF DRUG ADMINISTRATION [None]
  - HYPOCALCAEMIA [None]
  - WRONG DRUG ADMINISTERED [None]
